FAERS Safety Report 5409356-4 (Version None)
Quarter: 2007Q3

REPORT INFORMATION
  Report Type: 
  Country: None (occurrence: None)
  Receive Date: 20070807
  Receipt Date: 20070807
  Transmission Date: 20080115
  Serious: No
  Sender: FDA-Public Use
  Company Number: None

PATIENT
  Age: 54 Year
  Sex: Female
  Weight: 72.5755 kg

DRUGS (1)
  1. MIRAPEX [Suspect]
     Indication: RESTLESS LEGS SYNDROME
     Dosage: 3 TABLETS 3 TIMES A DAY PO
     Route: 048
     Dates: start: 20030821, end: 20070806

REACTIONS (2)
  - GAMBLING [None]
  - OBSESSIVE-COMPULSIVE DISORDER [None]
